FAERS Safety Report 6599355-1 (Version None)
Quarter: 2010Q1

REPORT INFORMATION
  Report Type: 
  Country: None (occurrence: None)
  Receive Date: 20100216
  Receipt Date: 20100208
  Transmission Date: 20100710
  Serious: Yes (Hospitalization, Disabling)
  Sender: FDA-Public Use
  Company Number: 2009JP006664

PATIENT
  Age: 62 Year
  Sex: Female
  Weight: 53 kg

DRUGS (12)
  1. TACROLIMUS [Suspect]
     Indication: LUPUS NEPHRITIS
     Dosage: 3 MG, UNKNOWN/D, ORAL
     Route: 048
     Dates: start: 20081211, end: 20090108
  2. LIPITOR [Suspect]
     Dosage: 10 MG, /D, ORAL
     Route: 048
  3. PREDNISOLONE [Concomitant]
  4. RABEPRAZOLE SODIUM [Concomitant]
  5. AMLODIPINE BESYLATE [Concomitant]
  6. ALFAROL (ALFACALCIDOL) [Concomitant]
  7. MUCOSTA (REBAMIPIDE) [Concomitant]
  8. URSODIOL [Concomitant]
  9. PLETAL [Concomitant]
  10. BONALON (ALENDRONATE SODIUM) [Concomitant]
  11. WARFARIN SODIUM [Concomitant]
  12. NEORAL [Concomitant]

REACTIONS (5)
  - BETA 2 MICROGLOBULIN URINE INCREASED [None]
  - BETA-N-ACETYL-D-GLUCOSAMINIDASE INCREASED [None]
  - BLOOD CREATINE PHOSPHOKINASE INCREASED [None]
  - BLOOD LACTATE DEHYDROGENASE INCREASED [None]
  - DRUG INTERACTION [None]
